FAERS Safety Report 12853096 (Version 1)
Quarter: 2016Q4

REPORT INFORMATION
  Report Type: Spontaneous
  Country: US (occurrence: US)
  Receive Date: 20161017
  Receipt Date: 20161017
  Transmission Date: 20170207
  Serious: No
  Sender: FDA-Public Use
  Company Number: None

PATIENT
  Age: 29 Year
  Sex: Female
  Weight: 65.32 kg

DRUGS (1)
  1. SKYLA [Suspect]
     Active Substance: LEVONORGESTREL
     Dates: start: 20160205

REACTIONS (3)
  - Cerebrospinal fluid leakage [None]
  - Intracranial pressure increased [None]
  - Impaired work ability [None]

NARRATIVE: CASE EVENT DATE: 20160801
